FAERS Safety Report 7072475-3 (Version None)
Quarter: 2010Q4

REPORT INFORMATION
  Report Type: 
  Country: None (occurrence: None)
  Receive Date: 20101029
  Receipt Date: 20100202
  Transmission Date: 20110411
  Serious: No
  Sender: FDA-Public Use
  Company Number: A0842604A

PATIENT
  Sex: Female

DRUGS (7)
  1. ADVAIR DISKUS 100/50 [Suspect]
     Indication: CHRONIC OBSTRUCTIVE PULMONARY DISEASE
     Dosage: 1PUFF TWICE PER DAY
     Route: 055
     Dates: start: 20010401
  2. ATROVENT [Concomitant]
  3. COMBIVENT [Concomitant]
  4. SINGULAIR [Concomitant]
  5. MULTI-VITAMIN [Concomitant]
  6. LOVAZA [Concomitant]
  7. OMEPRAZOLE [Concomitant]

REACTIONS (4)
  - CANDIDIASIS [None]
  - DECREASED APPETITE [None]
  - LIP EXFOLIATION [None]
  - WEIGHT DECREASED [None]
